FAERS Safety Report 26179379 (Version 1)
Quarter: 2025Q4

REPORT INFORMATION
  Report Type: Spontaneous
  Country: TR (occurrence: TR)
  Receive Date: 20251219
  Receipt Date: 20251219
  Transmission Date: 20260118
  Serious: Yes (Other)
  Sender: PFIZER
  Company Number: TR-PFIZER INC-PV202500148369

PATIENT
  Age: 23 Year
  Sex: Male

DRUGS (2)
  1. CIBINQO [Suspect]
     Active Substance: ABROCITINIB
     Indication: Dermatitis atopic
     Dosage: UNK
  2. BETAMETHASONE [Concomitant]
     Active Substance: BETAMETHASONE
     Dosage: PROACTIVE
     Route: 061

REACTIONS (5)
  - Neutropenia [Unknown]
  - Urticaria [Unknown]
  - Lymphocytosis [Unknown]
  - Hypercholesterolaemia [Unknown]
  - Blood creatine phosphokinase increased [Unknown]
